FAERS Safety Report 23672151 (Version 1)
Quarter: 2024Q1

REPORT INFORMATION
  Report Type: Spontaneous
  Country: US (occurrence: US)
  Receive Date: 20240326
  Receipt Date: 20240326
  Transmission Date: 20240410
  Serious: No
  Sender: FDA-Public Use
  Company Number: US-ALCON LABORATORIES-ALC2024US000709

PATIENT
  Sex: Female

DRUGS (1)
  1. PATADAY ONCE DAILY RELIEF [Suspect]
     Active Substance: OLOPATADINE HYDROCHLORIDE
     Indication: Hypersensitivity
     Dosage: ONE DROP IN EACH EYE, ONCE A DAY
     Route: 047
     Dates: start: 20240112

REACTIONS (2)
  - Drug ineffective [Recovering/Resolving]
  - Lacrimation increased [Recovering/Resolving]
